FAERS Safety Report 7827999-5 (Version None)
Quarter: 2011Q4

REPORT INFORMATION
  Report Type: 
  Country: None (occurrence: None)
  Receive Date: 20111020
  Receipt Date: 20111012
  Transmission Date: 20120403
  Serious: Yes (Hospitalization)
  Sender: FDA-Public Use
  Company Number: US-GLAXOSMITHKLINE-A0845540A

PATIENT
  Age: 60 Year
  Sex: Male
  Weight: 84.1 kg

DRUGS (6)
  1. ADVICOR [Concomitant]
  2. ZOCOR [Concomitant]
  3. LISINOPRIL [Concomitant]
  4. GLUCOPHAGE [Concomitant]
  5. AVANDIA [Suspect]
     Indication: TYPE 2 DIABETES MELLITUS
     Dosage: 2MG PER DAY
     Route: 048
     Dates: start: 20050228, end: 20080101
  6. TOPROL-XL [Concomitant]

REACTIONS (7)
  - HEART INJURY [None]
  - POST PROCEDURAL COMPLICATION [None]
  - LEG AMPUTATION [None]
  - MYOCARDIAL INFARCTION [None]
  - CORONARY ARTERY OCCLUSION [None]
  - CARDIOVASCULAR DISORDER [None]
  - LOBAR PNEUMONIA [None]
